FAERS Safety Report 9614892 (Version 1)
Quarter: 2013Q4

REPORT INFORMATION
  Report Type: Spontaneous
  Country: US (occurrence: None)
  Receive Date: 20131009
  Receipt Date: 20131009
  Transmission Date: 20140711
  Serious: Yes (Hospitalization)
  Sender: FDA-Public Use
  Company Number: None

PATIENT
  Age: 76 Year
  Sex: Female
  Weight: 72.3 kg

DRUGS (3)
  1. VELCADE [Suspect]
     Dosage: 4.4MG.
  2. RITUXIMAB [Suspect]
     Dosage: 650 MG.
  3. BENDAMUSTINE HYDROCHLORIDE [Suspect]
     Dosage: 308 MG.

REACTIONS (9)
  - Nausea [None]
  - Vomiting [None]
  - Diarrhoea [None]
  - Fatigue [None]
  - Pyrexia [None]
  - Dysuria [None]
  - Abdominal pain [None]
  - Oxygen saturation decreased [None]
  - Pleural effusion [None]
